FAERS Safety Report 5333016-1 (Version None)
Quarter: 2007Q2

REPORT INFORMATION
  Report Type: 
  Country: None (occurrence: None)
  Receive Date: 20070306
  Receipt Date: 20060725
  Transmission Date: 20071010
  Serious: Yes (Hospitalization)
  Sender: FDA-Public Use
  Company Number: A03200604715

PATIENT
  Age: 81 Year
  Sex: Female
  Weight: 60.9 kg

DRUGS (3)
  1. PLAVIX [Suspect]
     Indication: ANTIPLATELET THERAPY
     Dosage: 75 MG QD - ORAL
     Route: 048
     Dates: start: 20041001, end: 20060601
  2. CARBIDOPA, LEVODOPA + ENTACAPONE [Suspect]
     Indication: PARKINSON'S DISEASE
  3. SINEMET [Suspect]

REACTIONS (6)
  - ABDOMINAL PAIN [None]
  - ANAEMIA [None]
  - DIVERTICULUM INTESTINAL HAEMORRHAGIC [None]
  - HAEMATOCRIT DECREASED [None]
  - HAEMOGLOBIN DECREASED [None]
  - RECTAL HAEMORRHAGE [None]
